FAERS Safety Report 17088393 (Version 5)
Quarter: 2021Q3

REPORT INFORMATION
  Report Type: Spontaneous
  Country: US (occurrence: US)
  Receive Date: 20191128
  Receipt Date: 20210804
  Transmission Date: 20211014
  Serious: Yes (Other)
  Sender: FDA-Public Use
  Company Number: US-PFIZER INC-2018463670

PATIENT
  Age: 53 Year
  Sex: Male

DRUGS (4)
  1. XELJANZ [Suspect]
     Active Substance: TOFACITINIB CITRATE
     Indication: COLITIS ULCERATIVE
     Dosage: 5 MG
  2. XELJANZ [Suspect]
     Active Substance: TOFACITINIB CITRATE
     Indication: ANKYLOSING SPONDYLITIS
     Dosage: 5 MG, 2X/DAY
     Route: 048
     Dates: start: 2016
  3. XELJANZ [Suspect]
     Active Substance: TOFACITINIB CITRATE
     Dosage: 5 MG, 2X/DAY
     Route: 048
     Dates: start: 2013
  4. XELJANZ [Suspect]
     Active Substance: TOFACITINIB CITRATE
     Dosage: 5 MG, 2X/DAY, (ENTER 60 FOR 60 ? DO NOT BREAK)
     Route: 048
     Dates: start: 20181230

REACTIONS (6)
  - Thrombosis [Unknown]
  - Limb injury [Unknown]
  - Feeling abnormal [Unknown]
  - Tibia fracture [Unknown]
  - Depression [Unknown]
  - Condition aggravated [Unknown]

NARRATIVE: CASE EVENT DATE: 201911
